FAERS Safety Report 17949357 (Version 1)
Quarter: 2020Q2

REPORT INFORMATION
  Report Type: Spontaneous
  Country: US (occurrence: US)
  Receive Date: 20200625
  Receipt Date: 20200625
  Transmission Date: 20200714
  Serious: No
  Sender: FDA-Public Use
  Company Number: None

PATIENT
  Age: 58 Year
  Sex: Female
  Weight: 45.36 kg

DRUGS (2)
  1. DULOXETINE 30MG [Suspect]
     Active Substance: DULOXETINE
     Route: 048
     Dates: start: 202005, end: 202005
  2. DULOXETINE 30MG [Suspect]
     Active Substance: DULOXETINE
     Indication: MAJOR DEPRESSION
     Route: 048
     Dates: start: 201809, end: 201809

REACTIONS (2)
  - Psychomotor hyperactivity [None]
  - Logorrhoea [None]
